FAERS Safety Report 5130732-1 (Version None)
Quarter: 2006Q4

REPORT INFORMATION
  Report Type: 
  Country: None (occurrence: None)
  Receive Date: 20061018
  Receipt Date: 20061018
  Transmission Date: 20070319
  Serious: Yes (Life-Threatening, Hospitalization)
  Sender: FDA-Public Use
  Company Number: None

PATIENT
  Age: 25 Year
  Sex: Male
  Weight: 77.1115 kg

DRUGS (1)
  1. BACTRIM DS [Suspect]
     Indication: PROSTATE INFECTION
     Dosage: 800/160 2 TWICE A DAY FOR 6 WEEKS
     Dates: start: 20060912, end: 20060926

REACTIONS (1)
  - STEVENS-JOHNSON SYNDROME [None]
